FAERS Safety Report 14574266 (Version 2)
Quarter: 2018Q1

REPORT INFORMATION
  Report Type: Spontaneous
  Country: US (occurrence: US)
  Receive Date: 20180226
  Receipt Date: 20180307
  Transmission Date: 20180509
  Serious: Yes (Death)
  Sender: FDA-Public Use
  Company Number: US-MITSUBISHI TANABE PHARMA CORPORATION-MPE2018-0003221

PATIENT
  Age: 70 Year
  Sex: Female
  Weight: 70.37 kg

DRUGS (8)
  1. RADICAVA [Suspect]
     Active Substance: EDARAVONE
     Indication: AMYOTROPHIC LATERAL SCLEROSIS
     Route: 042
  2. RILUZOLE. [Concomitant]
     Active Substance: RILUZOLE
     Route: 048
  3. TIZANIDINE. [Concomitant]
     Active Substance: TIZANIDINE
     Route: 048
  4. METFORMIN [Concomitant]
     Active Substance: METFORMIN HYDROCHLORIDE
     Route: 048
  5. HYDROCHLOROTHIAZIDE LOSARTAN [Concomitant]
     Active Substance: HYDROCHLOROTHIAZIDE\LOSARTAN
     Route: 048
  6. ROBINUL [Concomitant]
     Active Substance: GLYCOPYRROLATE
     Route: 048
  7. XANAX [Concomitant]
     Active Substance: ALPRAZOLAM
     Route: 065
  8. ZOLOFT [Concomitant]
     Active Substance: SERTRALINE HYDROCHLORIDE
     Indication: DEPRESSION
     Route: 048

REACTIONS (1)
  - Amyotrophic lateral sclerosis [Fatal]

NARRATIVE: CASE EVENT DATE: 20171224
